FAERS Safety Report 7770437-1 (Version None)
Quarter: 2011Q3

REPORT INFORMATION
  Report Type: 
  Country: None (occurrence: None)
  Receive Date: 20110922
  Receipt Date: 20100827
  Transmission Date: 20111222
  Serious: No
  Sender: FDA-Public Use
  Company Number: US-ASTRAZENECA-2010SE40500

PATIENT
  Age: 21920 Day
  Sex: Female
  Weight: 55.3 kg

DRUGS (6)
  1. REMERON [Concomitant]
  2. XANAX [Concomitant]
     Indication: ANXIETY
  3. AMBIEN [Concomitant]
     Indication: INSOMNIA
  4. ABILIFY [Suspect]
     Indication: MAJOR DEPRESSION
     Route: 048
  5. SEROQUEL XR [Suspect]
     Indication: MAJOR DEPRESSION
     Route: 048
     Dates: start: 20100826
  6. RANITADINE [Concomitant]
     Indication: ABDOMINAL DISCOMFORT

REACTIONS (2)
  - TENSION HEADACHE [None]
  - HEADACHE [None]
